FAERS Safety Report 12717334 (Version 2)
Quarter: 2016Q3

REPORT INFORMATION
  Report Type: Spontaneous
  Country: CA (occurrence: CA)
  Receive Date: 20160906
  Receipt Date: 20160920
  Transmission Date: 20161109
  Serious: Yes (Other)
  Sender: FDA-Public Use
  Company Number: CA-PFIZER INC-2016414961

PATIENT
  Age: 70 Year
  Sex: Male

DRUGS (2)
  1. SOMAVERT [Suspect]
     Active Substance: PEGVISOMANT
     Indication: ACROMEGALY
     Dosage: 10 MG, CYCLIC ( 5X/WEEK)
     Route: 058
     Dates: start: 20090716
  2. CREON [Suspect]
     Active Substance: PANCRELIPASE AMYLASE\PANCRELIPASE LIPASE\PANCRELIPASE PROTEASE
     Dosage: UNK

REACTIONS (4)
  - Bronchitis [Not Recovered/Not Resolved]
  - Oropharyngeal pain [Unknown]
  - Activities of daily living impaired [Not Recovered/Not Resolved]
  - Dry skin [Not Recovered/Not Resolved]
